FAERS Safety Report 6343812-X (Version None)
Quarter: 2009Q3

REPORT INFORMATION
  Report Type: 
  Country: None (occurrence: None)
  Receive Date: 20090903
  Receipt Date: 20090903
  Transmission Date: 20100115
  Serious: Yes (Other)
  Sender: FDA-Public Use
  Company Number: None

PATIENT
  Age: 38 Year
  Sex: Female
  Weight: 48.9885 kg

DRUGS (1)
  1. MUCINEX DM [Suspect]
     Indication: COUGH
     Dosage: 1 TABLET EVERY 12 HOURS PO
     Route: 048
     Dates: start: 20090828, end: 20090901

REACTIONS (10)
  - CHILLS [None]
  - DISORIENTATION [None]
  - DIZZINESS [None]
  - GAIT DISTURBANCE [None]
  - HYPERHIDROSIS [None]
  - INCORRECT DOSE ADMINISTERED [None]
  - MUSCULAR WEAKNESS [None]
  - NERVOUSNESS [None]
  - VISION BLURRED [None]
  - VISUAL IMPAIRMENT [None]
